FAERS Safety Report 10522912 (Version 2)
Quarter: 2014Q4

REPORT INFORMATION
  Report Type: Spontaneous
  Country: US (occurrence: US)
  Receive Date: 20141016
  Receipt Date: 20141016
  Transmission Date: 20150528
  Serious: Yes (Death, Hospitalization, Other)
  Sender: FDA-Public Use
  Company Number: US-GLAXOSMITHKLINE-B0724904A

PATIENT
  Sex: Male

DRUGS (1)
  1. AVANDIA [Suspect]
     Active Substance: ROSIGLITAZONE MALEATE
     Indication: DIABETES MELLITUS
     Route: 048
     Dates: start: 200406, end: 200410

REACTIONS (8)
  - Myocardial infarction [Unknown]
  - Atrioventricular block second degree [Unknown]
  - Coronary artery disease [Fatal]
  - Cardiogenic shock [Fatal]
  - Cardiac failure congestive [Unknown]
  - Ischaemic cardiomyopathy [Unknown]
  - Cardiac arrest [Fatal]
  - Cardiac pacemaker insertion [Unknown]
